FAERS Safety Report 23653566 (Version 1)
Quarter: 2024Q1

REPORT INFORMATION
  Report Type: Spontaneous
  Country: US (occurrence: None)
  Receive Date: 20240313
  Receipt Date: 20240313
  Transmission Date: 20240410
  Serious: Yes (Other)
  Sender: FDA-Public Use
  Company Number: None

PATIENT
  Age: 17 Year
  Sex: Male

DRUGS (1)
  1. VOSILASARM [Suspect]
     Active Substance: VOSILASARM
     Dosage: FREQUENCY : DAILY;?
     Route: 048

REACTIONS (2)
  - Erectile dysfunction [None]
  - Therapy cessation [None]

NARRATIVE: CASE EVENT DATE: 20240313
